FAERS Safety Report 19783570 (Version 1)
Quarter: 2021Q3

REPORT INFORMATION
  Report Type: Spontaneous
  Country: AU (occurrence: AU)
  Receive Date: 20210902
  Receipt Date: 20210902
  Transmission Date: 20211014
  Serious: Yes (Hospitalization)
  Sender: FDA-Public Use
  Company Number: AU-ORGANON-O2108AUS002145

PATIENT
  Sex: Female

DRUGS (1)
  1. EZETROL [Suspect]
     Active Substance: EZETIMIBE
     Dosage: UNK

REACTIONS (4)
  - Hypersensitivity [Unknown]
  - Mouth swelling [Unknown]
  - Swelling face [Unknown]
  - Malaise [Unknown]
